FAERS Safety Report 5370147-4 (Version None)
Quarter: 2007Q2

REPORT INFORMATION
  Report Type: 
  Country: None (occurrence: None)
  Receive Date: 20070613
  Receipt Date: 20070313
  Transmission Date: 20071010
  Serious: No
  Sender: FDA-Public Use
  Company Number: IND-AE-07-SAN-010

PATIENT
  Age: 73 Year
  Sex: Female

DRUGS (3)
  1. SANCTURA [Suspect]
     Indication: HYPERTONIC BLADDER
     Dosage: 20MG - QD - PO
     Route: 048
     Dates: start: 20061101, end: 20070312
  2. SYNTHROID [Concomitant]
  3. TOPROL-XL [Concomitant]

REACTIONS (1)
  - VISION BLURRED [None]
